FAERS Safety Report 22863523 (Version 8)
Quarter: 2024Q3

REPORT INFORMATION
  Report Type: Report from Study
  Country: US (occurrence: US)
  Receive Date: 20230825
  Receipt Date: 20240710
  Transmission Date: 20241017
  Serious: No
  Sender: SANOFI AVENTIS
  Company Number: US-SA-SAC20230822000950

PATIENT
  Age: 72 Year
  Sex: Female

DRUGS (5)
  1. DUPILUMAB [Suspect]
     Active Substance: DUPILUMAB
     Indication: Dermatitis atopic
     Dosage: 600 MG, 1X
     Route: 058
     Dates: start: 20230820, end: 20230820
  2. DUPILUMAB [Suspect]
     Active Substance: DUPILUMAB
     Indication: Eczema
     Dosage: 300 MG, QOW
     Route: 058
     Dates: start: 2023
  3. DUPILUMAB [Suspect]
     Active Substance: DUPILUMAB
     Indication: Psoriasis
  4. SUMATRIPTAN [Concomitant]
     Active Substance: SUMATRIPTAN
     Indication: Migraine
     Dosage: UNK
  5. OTEZLA [Concomitant]
     Active Substance: APREMILAST
     Dosage: 1 DF, BID

REACTIONS (18)
  - Injection site vesicles [Unknown]
  - Injection site swelling [Unknown]
  - Injection site pain [Unknown]
  - Feeling abnormal [Unknown]
  - Skin haemorrhage [Unknown]
  - Dry skin [Unknown]
  - Emotional distress [Unknown]
  - Anger [Unknown]
  - Pruritus [Unknown]
  - Erythema [Unknown]
  - Skin exfoliation [Unknown]
  - Accidental exposure to product [Unknown]
  - Exposure via skin contact [Unknown]
  - Poor quality product administered [Unknown]
  - Product use in unapproved indication [Unknown]
  - Intentional product misuse [Unknown]
  - Incorrect disposal of product [Unknown]
  - Product storage error [Unknown]

NARRATIVE: CASE EVENT DATE: 20230820
